FAERS Safety Report 6222536-3 (Version None)
Quarter: 2009Q2

REPORT INFORMATION
  Report Type: 
  Country: None (occurrence: None)
  Receive Date: 20090611
  Receipt Date: 20090602
  Transmission Date: 20091009
  Serious: Yes (Hospitalization)
  Sender: FDA-Public Use
  Company Number: JP-ASTRAZENECA-2009SE02393

PATIENT
  Age: 81 Year
  Sex: Female

DRUGS (2)
  1. BLOPRESS [Suspect]
     Route: 048
  2. CONSTAN [Suspect]
     Route: 048

REACTIONS (1)
  - EOSINOPHIL COUNT INCREASED [None]
